FAERS Safety Report 18325828 (Version 1)
Quarter: 2020Q3

REPORT INFORMATION
  Report Type: Spontaneous
  Country: CH (occurrence: CH)
  Receive Date: 20200929
  Receipt Date: 20200929
  Transmission Date: 20201103
  Serious: Yes (Life-Threatening, Hospitalization, Other)
  Sender: FDA-Public Use
  Company Number: CH-ASTRAZENECA-2020SF22142

PATIENT
  Age: 32 Year
  Sex: Male

DRUGS (7)
  1. TRITTICO [Suspect]
     Active Substance: TRAZODONE HYDROCHLORIDE
     Dosage: IN TOTAL500.0MG UNKNOWN
     Route: 048
     Dates: start: 20160113, end: 20160113
  2. WELLBUTRIN [Concomitant]
     Active Substance: BUPROPION HYDROCHLORIDE
     Route: 048
  3. SEQUASE [Concomitant]
     Active Substance: QUETIAPINE FUMARATE
     Route: 048
  4. SEQUASE [Concomitant]
     Active Substance: QUETIAPINE FUMARATE
     Dosage: 250.0MG UNKNOWN
     Route: 048
     Dates: start: 20160113
  5. SEQUASE [Concomitant]
     Active Substance: QUETIAPINE FUMARATE
     Dosage: AS NECESSARY25.0MG UNKNOWN
     Route: 048
  6. DAFALGAN [Suspect]
     Active Substance: ACETAMINOPHEN
     Indication: OVERDOSE
     Dosage: IN TOTAL30.0G UNKNOWN
     Route: 048
     Dates: start: 20160113, end: 20160113
  7. SEQUASE [Suspect]
     Active Substance: QUETIAPINE FUMARATE
     Dosage: IN TOTAL250.0MG UNKNOWN
     Route: 048
     Dates: start: 20160113, end: 20160113

REACTIONS (2)
  - Poisoning [Recovered/Resolved]
  - Suicide attempt [Unknown]

NARRATIVE: CASE EVENT DATE: 20160113
